FAERS Safety Report 20255912 (Version 1)
Quarter: 2021Q4

REPORT INFORMATION
  Report Type: Spontaneous
  Country: US (occurrence: US)
  Receive Date: 20211230
  Receipt Date: 20211230
  Transmission Date: 20220304
  Serious: No
  Sender: FDA-Public Use
  Company Number: US-MACLEODS PHARMACEUTICALS US LTD-MAC2021033884

PATIENT

DRUGS (1)
  1. OLANZAPINE [Suspect]
     Active Substance: OLANZAPINE
     Indication: Product used for unknown indication
     Dosage: 5 MILLIGRAM; NDC NUMBER: 33342-083-07
     Route: 048

REACTIONS (5)
  - Tongue discomfort [Unknown]
  - Glossodynia [Unknown]
  - Oesophageal pain [Unknown]
  - Product taste abnormal [Unknown]
  - Product solubility abnormal [Unknown]
